FAERS Safety Report 5826748-X (Version None)
Quarter: 2008Q3

REPORT INFORMATION
  Report Type: 
  Country: None (occurrence: None)
  Receive Date: 20080728
  Receipt Date: 20080728
  Transmission Date: 20090109
  Serious: Yes (Life-Threatening, Other)
  Sender: FDA-Public Use
  Company Number: None

PATIENT
  Sex: Male
  Weight: 75.2 kg

DRUGS (10)
  1. BENZOCAINE/TETRACAINE 20% BEUTLICH [Suspect]
     Indication: ECHOCARDIOGRAM
     Dosage: 1 SPRAY ONCE TOP
     Route: 061
     Dates: start: 20070829, end: 20070829
  2. NEXIUM [Concomitant]
  3. ASPIRIN [Concomitant]
  4. LEXAPRO [Concomitant]
  5. COLACE [Concomitant]
  6. SENNA [Concomitant]
  7. DIAZEPAM [Concomitant]
  8. ZOFRAN [Concomitant]
  9. MUCINEX [Concomitant]
  10. HEPARIN [Concomitant]

REACTIONS (2)
  - METHAEMOGLOBINAEMIA [None]
  - POST PROCEDURAL COMPLICATION [None]
